FAERS Safety Report 18865611 (Version 1)
Quarter: 2021Q1

REPORT INFORMATION
  Report Type: Not Available
  Country: US (occurrence: US)
  Receive Date: 20210208
  Receipt Date: 20210208
  Transmission Date: 20210420
  Serious: No
  Sender: FDA-Public Use
  Company Number: US-NEUROCRINE BIOSCIENCES INC.-2021NBI00366

PATIENT
  Age: 79 Year
  Sex: Female

DRUGS (1)
  1. INGREZZA [Suspect]
     Active Substance: VALBENAZINE
     Indication: TARDIVE DYSKINESIA
     Route: 048
     Dates: start: 20200612

REACTIONS (6)
  - Feeling abnormal [Unknown]
  - Dysphonia [Unknown]
  - Tremor [Unknown]
  - Dry mouth [Unknown]
  - Confusional state [Unknown]
  - Gait disturbance [Unknown]
